FAERS Safety Report 11614720 (Version 7)
Quarter: 2016Q2

REPORT INFORMATION
  Report Type: Spontaneous
  Country: ES (occurrence: ES)
  Receive Date: 20151009
  Receipt Date: 20160411
  Transmission Date: 20160815
  Serious: Yes (Hospitalization, Other)
  Sender: FDA-Public Use
  Company Number: ES-AMGEN-ESPSP2015101604

PATIENT
  Age: 72 Year
  Sex: Female

DRUGS (28)
  1. OMEPRAZOL MYLAN                    /00661201/ [Concomitant]
     Indication: PROPHYLAXIS
     Dosage: 20 MG, 2X/DAY (EVERY 12 HOURS)
     Route: 065
  2. EMPORTAL [Concomitant]
     Indication: CONSTIPATION
     Dosage: 1 DF, 1X/DAY (AT NIGHT)
  3. ENBREL [Suspect]
     Active Substance: ETANERCEPT
     Indication: POLYARTHRITIS
     Dosage: 50 MG, WEEKLY
     Route: 058
  4. ENBREL [Suspect]
     Active Substance: ETANERCEPT
     Dosage: 50 MG, WEEKLY
     Route: 065
  5. PREDNISONE. [Concomitant]
     Active Substance: PREDNISONE
     Indication: POLYARTHRITIS
     Dosage: 5 MG, 1X/DAY (IN MORNINGS)
  6. PROVISACOR [Concomitant]
     Active Substance: ROSUVASTATIN
     Indication: HYPERCHOLESTEROLAEMIA
     Dosage: 20 MG, 1X/DAY (AT NIGHT)
  7. NAPROSYN [Concomitant]
     Active Substance: NAPROXEN
     Indication: INFLAMMATION
  8. FERROPROTINA                       /00023527/ [Concomitant]
     Indication: BLOOD IRON DECREASED
     Dosage: 80 MG, DAILY, 2 SACHETS OF 40 MG 1X/DAY IN THE MORNINGS
  9. ENBREL [Suspect]
     Active Substance: ETANERCEPT
     Indication: RHEUMATOID ARTHRITIS
     Dosage: 50 MG, WEEKLY (ON FRIDAYS)
     Route: 058
     Dates: start: 20150619
  10. SPIRIVA [Concomitant]
     Active Substance: TIOTROPIUM BROMIDE MONOHYDRATE
     Indication: FATIGUE
  11. ENBREL [Suspect]
     Active Substance: ETANERCEPT
     Dosage: 50 MG, WEEKLY
     Route: 058
  12. PREDNISONE. [Concomitant]
     Active Substance: PREDNISONE
     Indication: RHEUMATOID ARTHRITIS
  13. FLUOXETINE [Concomitant]
     Active Substance: FLUOXETINE HYDROCHLORIDE
     Indication: NERVOUSNESS
     Dosage: 20 MG, 1X/DAY (IN THE MORNINGS)
  14. FERROPROTINA                       /00023527/ [Concomitant]
     Indication: BLOOD IRON DECREASED
     Dosage: 80 MG DAILY, 2 SACHETS OF 40 MG 1X/DAY IN THE MORNINGS
  15. OMEPRAZOL MYLAN                    /00661201/ [Concomitant]
     Indication: PROPHYLAXIS
     Dosage: 20 MG, 2X/DAY (EVERY 12 HOURS)
  16. ENBREL [Suspect]
     Active Substance: ETANERCEPT
     Dosage: 50 MG, WEEKLY
     Route: 058
     Dates: end: 201509
  17. ALPRAZOLAM. [Concomitant]
     Active Substance: ALPRAZOLAM
     Indication: SLEEP DISORDER
     Dosage: 1 G AT NIGHTS TO SLEEP, BUT IF THE PATIENT WAS VERY NERVOUS, SHE TOOK 1.5 G
  18. METFORMIN [Concomitant]
     Active Substance: METFORMIN HYDROCHLORIDE
     Indication: TYPE 1 DIABETES MELLITUS
     Dosage: UNK, 1X/DAY (AT NOON)
  19. SPIRIVA [Concomitant]
     Active Substance: TIOTROPIUM BROMIDE MONOHYDRATE
     Indication: ASTHMA
     Dosage: 1 DF, 1X/DAY (BEFORE GOING TO BED)
     Route: 055
  20. OPTOVITE B12 [Concomitant]
     Active Substance: CYANOCOBALAMIN
     Indication: DRUG TOXICITY PROPHYLAXIS
     Dosage: 1 DF, EVERY 15 DAYS
  21. METOJECT [Suspect]
     Active Substance: METHOTREXATE SODIUM
     Indication: POLYARTHRITIS
     Dosage: 25 MG, WEEKLY, ON MONDAYS
     Route: 058
  22. METOJECT [Suspect]
     Active Substance: METHOTREXATE SODIUM
     Indication: RHEUMATOID ARTHRITIS
  23. NAPROSYN [Concomitant]
     Active Substance: NAPROXEN
     Indication: PAIN
     Dosage: 500 MG, 2X/DAY
  24. NAPROSYN [Concomitant]
     Active Substance: NAPROXEN
     Indication: INFLAMMATION
  25. ALENDRONIC ACID TEVA [Concomitant]
     Indication: PROPHYLAXIS
     Dosage: 70 MG, WEEKLY (ON FRIDAYS)
  26. ACFOL [Concomitant]
     Active Substance: FOLIC ACID
     Dosage: 2 DF, WEEKLY (ON TUESDAYS)
  27. IDEOS [Concomitant]
     Active Substance: CALCIUM CARBONATE\CHOLECALCIFEROL
     Dosage: 1 DF, 2X/DAY
  28. NAPROSYN [Concomitant]
     Active Substance: NAPROXEN
     Indication: PAIN
     Dosage: 500 MG, 2X/DAY

REACTIONS (14)
  - Pain [Recovered/Resolved]
  - Diarrhoea [Recovered/Resolved]
  - Skin haemorrhage [Recovered/Resolved]
  - Sepsis [Recovered/Resolved]
  - Skin papilloma [Recovered/Resolved]
  - Disease recurrence [Unknown]
  - Pyrexia [Recovered/Resolved]
  - Disease recurrence [Unknown]
  - Fatigue [Not Recovered/Not Resolved]
  - Constipation [Not Recovered/Not Resolved]
  - Injection site irritation [Recovered/Resolved]
  - Chills [Recovered/Resolved]
  - Vomiting [Recovered/Resolved]
  - Urinary tract infection [Recovered/Resolved]

NARRATIVE: CASE EVENT DATE: 2015
